FAERS Safety Report 7597267-8 (Version None)
Quarter: 2011Q3

REPORT INFORMATION
  Report Type: 
  Country: None (occurrence: None)
  Receive Date: 20110708
  Receipt Date: 20110128
  Transmission Date: 20111222
  Serious: No
  Sender: FDA-Public Use
  Company Number: US-GLAXOSMITHKLINE-A0910205A

PATIENT
  Age: 45 Year
  Sex: Female

DRUGS (5)
  1. NEXIUM [Concomitant]
  2. RELPAX [Concomitant]
  3. VENTOLIN HFA [Concomitant]
  4. WELLBUTRIN [Concomitant]
  5. FLOVENT [Suspect]
     Indication: CHRONIC OBSTRUCTIVE PULMONARY DISEASE
     Dosage: 2PUFF TWICE PER DAY
     Route: 055
     Dates: start: 20060101

REACTIONS (3)
  - ASTHENIA [None]
  - THERAPEUTIC RESPONSE DECREASED [None]
  - CHRONIC OBSTRUCTIVE PULMONARY DISEASE [None]
